FAERS Safety Report 6521532-6 (Version None)
Quarter: 2009Q4

REPORT INFORMATION
  Report Type: 
  Country: None (occurrence: None)
  Receive Date: 20091230
  Receipt Date: 20091221
  Transmission Date: 20100525
  Serious: Yes (Other)
  Sender: FDA-Public Use
  Company Number: ES-BRISTOL-MYERS SQUIBB COMPANY-14904239

PATIENT
  Age: 60 Year
  Sex: Male

DRUGS (1)
  1. MITOMYCIN [Suspect]
     Indication: BLADDER CANCER
     Route: 043

REACTIONS (2)
  - DERMATITIS CONTACT [None]
  - TYPE IV HYPERSENSITIVITY REACTION [None]
